FAERS Safety Report 16464573 (Version 1)
Quarter: 2019Q2

REPORT INFORMATION
  Report Type: Spontaneous
  Country: PT (occurrence: PT)
  Receive Date: 20190621
  Receipt Date: 20190621
  Transmission Date: 20190711
  Serious: Yes (Other)
  Sender: FDA-Public Use
  Company Number: PT-PFIZER INC-2019266372

PATIENT

DRUGS (1)
  1. INFLIXIMAB PFIZER [Suspect]
     Active Substance: INFLIXIMAB
     Indication: BREAST NEOPLASM
     Dosage: UNK
     Route: 065

REACTIONS (4)
  - Adenocarcinoma [Unknown]
  - Second primary malignancy [Unknown]
  - Off label use [Unknown]
  - Product use in unapproved indication [Unknown]
